APPROVED DRUG PRODUCT: AMOXICILLIN AND CLAVULANATE POTASSIUM
Active Ingredient: AMOXICILLIN; CLAVULANATE POTASSIUM
Strength: 200MG/5ML;EQ 28.5MG BASE/5ML
Dosage Form/Route: FOR SUSPENSION;ORAL
Application: A065132 | Product #001
Applicant: SUN PHARMACEUTICAL INDUSTRIES LTD
Approved: Mar 19, 2003 | RLD: No | RS: No | Type: DISCN